FAERS Safety Report 5445720-5 (Version None)
Quarter: 2007Q3

REPORT INFORMATION
  Report Type: 
  Country: None (occurrence: None)
  Receive Date: 20070904
  Receipt Date: 20070817
  Transmission Date: 20080115
  Serious: Yes (Death, Hospitalization)
  Sender: FDA-Public Use
  Company Number: CTI_00919_2007

PATIENT
  Age: 33 Year
  Sex: Female

DRUGS (9)
  1. ZYFLO [Suspect]
     Indication: ASTHMA
     Dosage: (DF)
     Dates: start: 20070701, end: 20070810
  2. AMIODARONE HCL [Concomitant]
  3. DIGOXIN [Concomitant]
  4. LOVENOX [Concomitant]
  5. ALBUTEROL [Concomitant]
  6. BUDESONIDE [Concomitant]
  7. ATROVENT [Concomitant]
  8. AVELOX [Concomitant]
  9. PREDNISONE [Concomitant]

REACTIONS (2)
  - ASTHMA [None]
  - CARDIOMYOPATHY [None]
